FAERS Safety Report 23281863 (Version 2)
Quarter: 2024Q1

REPORT INFORMATION
  Report Type: Other
  Country: JP (occurrence: None)
  Receive Date: 20231211
  Receipt Date: 20240216
  Transmission Date: 20240409
  Serious: Yes (Hospitalization)
  Sender: FDA-Public Use
  Company Number: JP-ROCHE-3472236

PATIENT
  Age: 19 Year
  Sex: Female
  Weight: 72.1 kg

DRUGS (12)
  1. RITUXIMAB [Suspect]
     Active Substance: RITUXIMAB
     Indication: Nephrotic syndrome
     Dosage: FOR A TOTAL FOUR DOSES
     Route: 042
     Dates: start: 20210212
  2. METHYLPREDNISOLONE SODIUM SUCCINATE [Concomitant]
     Active Substance: METHYLPREDNISOLONE SODIUM SUCCINATE
     Dosage: TOTAL OF FIVE COURSES
  3. AMLODIPINE [Concomitant]
     Active Substance: AMLODIPINE BESYLATE
     Indication: Hypertension
     Dosage: ONE TIME DOSE: 10 MG
     Route: 048
     Dates: start: 20210203
  4. ENALAPRIL [Concomitant]
     Active Substance: ENALAPRIL
     Indication: Hypertension
     Dosage: ONE TIME DOSE: 5 MG
     Route: 048
     Dates: start: 20200326
  5. OLMESARTAN [Concomitant]
     Active Substance: OLMESARTAN
     Indication: Hypertension
     Dosage: ONE TIME DOSE: 20 MG
     Route: 048
     Dates: start: 20210203
  6. ALFACALCIDOL [Concomitant]
     Active Substance: ALFACALCIDOL
     Indication: Osteoporosis prophylaxis
     Dosage: ONE TIME DOSE: 2 DF
     Route: 048
     Dates: start: 20201119
  7. FAMOTIDINE [Concomitant]
     Active Substance: FAMOTIDINE
     Indication: Gastritis prophylaxis
     Dosage: ONE TIME DOSE: 20 MG
     Route: 048
     Dates: start: 20201023
  8. SULFAMETHOXAZOLE\TRIMETHOPRIM [Concomitant]
     Active Substance: SULFAMETHOXAZOLE\TRIMETHOPRIM
     Indication: Infection prophylaxis
     Dosage: ONE TIME DOSE: 160 MG
     Route: 048
     Dates: start: 20200820
  9. SOLU-MEDROL [Concomitant]
     Active Substance: METHYLPREDNISOLONE SODIUM SUCCINATE
     Dosage: ONE TIME DOSE: 1000 MG
     Route: 041
     Dates: start: 20210317
  10. HEPARIN SODIUM [Concomitant]
     Active Substance: HEPARIN SODIUM
     Dosage: ONE TIME DOSE: 22.5 ML
     Route: 041
     Dates: start: 20210316
  11. BENZOYL PEROXIDE [Concomitant]
     Active Substance: BENZOYL PEROXIDE
     Indication: Acne
     Route: 003
     Dates: start: 20210406
  12. PREDNISOLONE [Concomitant]
     Active Substance: PREDNISOLONE
     Dates: start: 20210207

REACTIONS (3)
  - Acute kidney injury [Recovered/Resolved]
  - Infusion related reaction [Recovered/Resolved]
  - Oropharyngeal discomfort [Recovered/Resolved]

NARRATIVE: CASE EVENT DATE: 20210409
